FAERS Safety Report 6309757-6 (Version None)
Quarter: 2009Q3

REPORT INFORMATION
  Report Type: 
  Country: None (occurrence: None)
  Receive Date: 20090814
  Receipt Date: 20090803
  Transmission Date: 20100115
  Serious: Yes (Hospitalization, Other)
  Sender: FDA-Public Use
  Company Number: US-ELI_LILLY_AND_COMPANY-US200611002713

PATIENT
  Sex: Female

DRUGS (21)
  1. CYMBALTA [Suspect]
     Indication: BACK INJURY
     Dosage: 30 MG, DAILY (1/D)
     Route: 048
     Dates: start: 20061101, end: 20061101
  2. CYMBALTA [Suspect]
     Dosage: 30 MG, 2/D
     Route: 048
  3. CYMBALTA [Suspect]
     Dosage: 60 MG, UNK
     Dates: start: 20070101
  4. K-DUR [Concomitant]
  5. LASIX [Concomitant]
  6. COREG [Concomitant]
  7. IMDUR [Concomitant]
  8. RANEXA [Concomitant]
  9. PLAVIX [Concomitant]
  10. CRESTOR [Concomitant]
  11. ALTACE [Concomitant]
  12. COUMADIN [Concomitant]
  13. NITROSTAT [Concomitant]
  14. KADIAN [Concomitant]
  15. HYDROMORPHONE HCL [Concomitant]
  16. PROVIGIL [Concomitant]
  17. WELLBUTRIN [Concomitant]
  18. MELOXICAM [Concomitant]
  19. CLONAZEPAM [Concomitant]
  20. ASPIRIN [Concomitant]
  21. GLYCOLAX [Concomitant]

REACTIONS (11)
  - ABDOMINAL DISCOMFORT [None]
  - ADVERSE EVENT [None]
  - APNOEA [None]
  - BALANCE DISORDER [None]
  - CEREBROVASCULAR ACCIDENT [None]
  - CONTUSION [None]
  - IMPLANTABLE DEFIBRILLATOR INSERTION [None]
  - INFLUENZA LIKE ILLNESS [None]
  - MYOCARDIAL INFARCTION [None]
  - RASH [None]
  - VOMITING [None]
